FAERS Safety Report 10049839 (Version 1)
Quarter: 2014Q2

REPORT INFORMATION
  Report Type: Spontaneous
  Country: IN (occurrence: IN)
  Receive Date: 20140401
  Receipt Date: 20140401
  Transmission Date: 20141212
  Serious: Yes (Death, Hospitalization)
  Sender: FDA-Public Use
  Company Number: IN-MYLANLABS-2014S1006611

PATIENT
  Age: 26 Year
  Sex: Male

DRUGS (7)
  1. HEPARIN [Suspect]
     Indication: DRUG ABUSE
     Route: 065
  2. DEXAMETHASONE [Suspect]
     Indication: DRUG DEPENDENCE
     Route: 042
  3. DICLOFENAC [Suspect]
     Indication: DRUG DEPENDENCE
     Route: 042
  4. DICLOFENAC [Suspect]
     Indication: OFF LABEL USE
     Route: 042
  5. TRAMADOL [Suspect]
     Indication: DRUG DEPENDENCE
     Route: 042
  6. TRAMADOL [Suspect]
     Indication: OFF LABEL USE
     Route: 042
  7. PHENIRAMINE [Suspect]
     Indication: DRUG DEPENDENCE
     Route: 042

REACTIONS (9)
  - Hyperkalaemia [Fatal]
  - Drug abuse [Unknown]
  - Drug dependence [Unknown]
  - Metabolic acidosis [Unknown]
  - Sepsis [Unknown]
  - Coagulopathy [Unknown]
  - Thrombocytopenia [Unknown]
  - Ventricular fibrillation [Recovered/Resolved]
  - Lactic acidosis [Unknown]
